FAERS Safety Report 14517260 (Version 1)
Quarter: 2018Q1

REPORT INFORMATION
  Report Type: Report from Study
  Country: US (occurrence: US)
  Receive Date: 20180212
  Receipt Date: 20180212
  Transmission Date: 20180509
  Serious: Yes (Other)
  Sender: FDA-Public Use
  Company Number: US-ROCHE-2069454

PATIENT

DRUGS (2)
  1. RITUXIMAB. [Suspect]
     Active Substance: RITUXIMAB
     Indication: NEUROMYELITIS OPTICA SPECTRUM DISORDER
  2. RITUXIMAB. [Suspect]
     Active Substance: RITUXIMAB
     Indication: MULTIPLE SCLEROSIS
     Route: 042

REACTIONS (16)
  - Intentional product use issue [Unknown]
  - Decubitus ulcer [Unknown]
  - Vision blurred [Unknown]
  - Nausea [Unknown]
  - Papillary thyroid cancer [Unknown]
  - Throat irritation [Unknown]
  - Squamous cell carcinoma [Unknown]
  - Dyspnoea [Unknown]
  - Rash [Unknown]
  - Headache [Unknown]
  - Chest pain [Unknown]
  - Urinary tract infection [Unknown]
  - Meningitis bacterial [Unknown]
  - Pain [Unknown]
  - Off label use [Unknown]
  - Pruritus [Unknown]
